FAERS Safety Report 5455168-5 (Version None)
Quarter: 2007Q3

REPORT INFORMATION
  Report Type: 
  Country: None (occurrence: None)
  Receive Date: 20070914
  Receipt Date: 20070904
  Transmission Date: 20080115
  Serious: Yes (Other)
  Sender: FDA-Public Use
  Company Number: 2007-02103

PATIENT
  Age: 76 Year
  Sex: Female
  Weight: 49 kg

DRUGS (5)
  1. VELCADE [Suspect]
     Indication: MULTIPLE MYELOMA
     Dosage: 1.74 MG, INTRAVENOUS
     Route: 042
     Dates: start: 20070522, end: 20070525
  2. FAMOTIDINE [Concomitant]
  3. ALLOPURINOL [Concomitant]
  4. METHYCOBAL (MECOBALAMIN) [Concomitant]
  5. INDACIN (INDOMETACIN) [Concomitant]

REACTIONS (5)
  - ASTHMA [None]
  - PLATELET COUNT DECREASED [None]
  - PYREXIA [None]
  - RASH [None]
  - WHITE BLOOD CELL COUNT DECREASED [None]
